FAERS Safety Report 22354288 (Version 1)
Quarter: 2023Q2

REPORT INFORMATION
  Report Type: Spontaneous
  Country: US (occurrence: None)
  Receive Date: 20230522
  Receipt Date: 20230522
  Transmission Date: 20230722
  Serious: Yes (Other)
  Sender: FDA-Public Use
  Company Number: None

PATIENT
  Age: 69 Year
  Sex: Male
  Weight: 63 kg

DRUGS (5)
  1. ASTEPRO ALLERGY [Suspect]
     Active Substance: AZELASTINE HYDROCHLORIDE
     Indication: Seasonal allergy
     Dosage: OTHER STRENGTH : MCG;?OTHER QUANTITY : 1 SPRAY(S);?FREQUENCY : TWICE A DAY;?OTHER ROUTE : SPRAY;?
     Route: 050
     Dates: start: 20230515, end: 20230519
  2. LEVOTHYROXINE [Concomitant]
     Active Substance: LEVOTHYROXINE
  3. VITAMINS [Concomitant]
     Active Substance: VITAMINS
  4. B-12 injections [Concomitant]
  5. VITAMIN D [Concomitant]
     Active Substance: VITAMIN D NOS

REACTIONS (3)
  - Epistaxis [None]
  - Diarrhoea [None]
  - Product substitution issue [None]

NARRATIVE: CASE EVENT DATE: 20230515
